FAERS Safety Report 16082100 (Version 2)
Quarter: 2019Q2

REPORT INFORMATION
  Report Type: Spontaneous
  Country: US (occurrence: US)
  Receive Date: 20190317
  Receipt Date: 20190416
  Transmission Date: 20190711
  Serious: Yes (Other)
  Sender: FDA-Public Use
  Company Number: US-PRINSTON PHARMACEUTICAL INC.-2019PRN00308

PATIENT
  Sex: Female
  Weight: 72.56 kg

DRUGS (8)
  1. CLONAZEPAM. [Suspect]
     Active Substance: CLONAZEPAM
     Indication: PANIC DISORDER
     Dosage: 2 MG, 1X/DAY
     Route: 048
     Dates: start: 1999
  2. CLONAZEPAM. [Suspect]
     Active Substance: CLONAZEPAM
     Indication: ANXIETY
     Dosage: 0.5 MG, 2X/DAY
     Dates: start: 20100928
  3. CLOMIPRAMINE [Concomitant]
     Active Substance: CLOMIPRAMINE
     Dosage: ^REDUCED DOSE^
     Dates: start: 2019
  4. CLOMIPRAMINE [Concomitant]
     Active Substance: CLOMIPRAMINE
     Dosage: UNK
     Dates: start: 20100807, end: 2019
  5. LAMOTRIGINE. [Concomitant]
     Active Substance: LAMOTRIGINE
     Dosage: 300 MG, 1X/DAY
  6. DESIPRAMINE [Concomitant]
     Active Substance: DESIPRAMINE
     Dosage: 200 MG, 1X/DAY
  7. ADVIL [Concomitant]
     Active Substance: IBUPROFEN
     Dosage: UNK, AS NEEDED
  8. REXULTI [Concomitant]
     Active Substance: BREXPIPRAZOLE
     Dosage: 4 MG, 1X/DAY

REACTIONS (2)
  - Amnesia [Not Recovered/Not Resolved]
  - Dementia [Not Recovered/Not Resolved]

NARRATIVE: CASE EVENT DATE: 2017
